FAERS Safety Report 21439661 (Version 2)
Quarter: 2022Q4

REPORT INFORMATION
  Report Type: Report from Study
  Country: ID (occurrence: ID)
  Receive Date: 20221011
  Receipt Date: 20221013
  Transmission Date: 20230113
  Serious: Yes (Death, Hospitalization)
  Sender: FDA-Public Use
  Company Number: ID-BAYER-2022P016510

PATIENT
  Age: 60 Year
  Sex: Male

DRUGS (1)
  1. NEXAVAR [Suspect]
     Active Substance: SORAFENIB
     Indication: Hepatocellular carcinoma
     Dosage: 2X200 MG
     Route: 048
     Dates: start: 20220819, end: 20220919

REACTIONS (2)
  - Hepatocellular carcinoma [Fatal]
  - Loss of consciousness [None]

NARRATIVE: CASE EVENT DATE: 20220920
